FAERS Safety Report 9349017 (Version 2)
Quarter: 2013Q3

REPORT INFORMATION
  Report Type: Report from Study
  Country: US (occurrence: US)
  Receive Date: 20130614
  Receipt Date: 20130715
  Transmission Date: 20140515
  Serious: Yes (Hospitalization)
  Sender: FDA-Public Use
  Company Number: US-ALEXION PHARMACEUTICALS INC.-A201301379

PATIENT
  Age: 8 Year
  Sex: 0

DRUGS (8)
  1. ECULIZUMAB [Suspect]
     Indication: HAEMOLYTIC URAEMIC SYNDROME
     Dosage: 300 MG, Q2W
     Route: 042
  2. TYLENOL WITH CODEINE [Concomitant]
     Dosage: 3/4-11/2 TSP Q 4HR PRN
     Route: 048
  3. CALCITRIOL [Concomitant]
     Dosage: 0.2 MCG DAILY
     Route: 048
  4. ARANESP [Concomitant]
     Dosage: 20 MCG Q2W
     Route: 058
  5. PROGRAF [Concomitant]
     Dosage: 3.8 MG, BID
     Route: 048
  6. CELLCEPT [Concomitant]
     Dosage: 200 MG, BID
     Route: 048
  7. PRILOSEC [Concomitant]
     Dosage: 20 MG, QD PEG TUBE
     Route: 050
  8. NORVASC [Concomitant]
     Dosage: 2.5 MG, BID
     Route: 048

REACTIONS (1)
  - Tonsillitis [Recovered/Resolved]
